FAERS Safety Report 10619374 (Version 1)
Quarter: 2014Q4

REPORT INFORMATION
  Report Type: Spontaneous
  Country: US (occurrence: US)
  Receive Date: 20141202
  Receipt Date: 20141202
  Transmission Date: 20150529
  Serious: Yes (Other)
  Sender: FDA-Public Use
  Company Number: US-GLAXOSMITHKLINE-US2014GSK027411

PATIENT
  Sex: Female

DRUGS (4)
  1. PRO-AIR (ALBUTEROL SULFATE) [Concomitant]
  2. NASONEX [Concomitant]
     Active Substance: MOMETASONE FUROATE
  3. ADVAIR DISKUS [Suspect]
     Active Substance: FLUTICASONE PROPIONATE\SALMETEROL XINAFOATE
     Indication: ASTHMA
     Dosage: 1 PUFF(S), BID
     Route: 055
     Dates: start: 2004
  4. ADVAIR DISKUS [Suspect]
     Active Substance: FLUTICASONE PROPIONATE\SALMETEROL XINAFOATE
     Dosage: 1 PUFF(S), QOD

REACTIONS (4)
  - Treatment noncompliance [Unknown]
  - Choking [Unknown]
  - Dyspnoea [Recovering/Resolving]
  - Incorrect dose administered [Unknown]

NARRATIVE: CASE EVENT DATE: 2014
